FAERS Safety Report 18151211 (Version 3)
Quarter: 2020Q3

REPORT INFORMATION
  Report Type: Spontaneous
  Country: US (occurrence: US)
  Receive Date: 20200814
  Receipt Date: 20200922
  Transmission Date: 20201103
  Serious: No
  Sender: FDA-Public Use
  Company Number: US-JNJFOC-20200817130

PATIENT
  Age: 65 Year
  Sex: Female
  Weight: 62.65 kg

DRUGS (6)
  1. SIMPONI [Suspect]
     Active Substance: GOLIMUMAB
     Indication: CROHN^S DISEASE
     Route: 058
  2. MAGNESIUM [Concomitant]
     Active Substance: MAGNESIUM
  3. SERTRALINE                         /01011402/ [Concomitant]
     Active Substance: SERTRALINE HYDROCHLORIDE
  4. B?COMPLEX                          /06817001/ [Concomitant]
  5. MELATONIN [Concomitant]
     Active Substance: MELATONIN
  6. ALPRAZOLAM. [Concomitant]
     Active Substance: ALPRAZOLAM

REACTIONS (4)
  - Drug delivery system malfunction [Unknown]
  - Product dose omission issue [Unknown]
  - Off label use [Unknown]
  - Product use in unapproved indication [Unknown]
